FAERS Safety Report 9102012 (Version 1)
Quarter: 2013Q1

REPORT INFORMATION
  Report Type: Spontaneous
  Country: JP (occurrence: JP)
  Receive Date: 20130218
  Receipt Date: 20130218
  Transmission Date: 20140127
  Serious: Yes (Hospitalization, Other)
  Sender: FDA-Public Use
  Company Number: JP-ASTRAZENECA-2013SE08212

PATIENT
  Age: 90 Year
  Sex: Female

DRUGS (2)
  1. SYMBICORT TURBUHALER [Suspect]
     Indication: ASTHMA
     Dosage: 1 DF BID
     Route: 055
     Dates: end: 201301
  2. THEOPHYLLINE [Suspect]
     Indication: ASTHMA
     Dosage: DOSE UNKNOWN
     Route: 065

REACTIONS (2)
  - Coordination abnormal [Recovering/Resolving]
  - Tachycardia [Recovered/Resolved]
